FAERS Safety Report 23996833 (Version 3)
Quarter: 2024Q4

REPORT INFORMATION
  Report Type: Spontaneous
  Country: DE (occurrence: DE)
  Receive Date: 20240620
  Receipt Date: 20241025
  Transmission Date: 20250114
  Serious: Yes (Death, Hospitalization, Other)
  Sender: SANDOZ
  Company Number: None

PATIENT
  Age: 63 Year
  Sex: Female

DRUGS (116)
  1. AMPHOTERICIN B [Suspect]
     Active Substance: AMPHOTERICIN B
     Indication: Antibiotic prophylaxis
     Dosage: UNK
     Route: 065
  2. AMSACRINE [Suspect]
     Active Substance: AMSACRINE
     Indication: Acute myeloid leukaemia
     Dosage: 100 MG/M2, UNK
     Route: 065
  3. BUSULFAN [Suspect]
     Active Substance: BUSULFAN
     Indication: Acute myeloid leukaemia
     Dosage: 3.2 MG/KG, UNK
     Route: 065
  4. BUSULFAN [Suspect]
     Active Substance: BUSULFAN
     Dosage: 3.2 MG/KG, UNK
     Route: 065
  5. BUSULFAN [Suspect]
     Active Substance: BUSULFAN
     Dosage: 3.2 MG/KG, UNK
     Route: 065
  6. BUSULFAN [Suspect]
     Active Substance: BUSULFAN
     Dosage: 3.2 MG/KG, UNK
     Route: 065
  7. BUSULFAN [Suspect]
     Active Substance: BUSULFAN
     Dosage: 3.2 MG/KG, UNK
     Route: 065
  8. BUSULFAN [Suspect]
     Active Substance: BUSULFAN
     Dosage: 3.2 MG/KG, UNK
     Route: 065
  9. BUSULFAN [Suspect]
     Active Substance: BUSULFAN
     Dosage: 3.2 MG/KG, UNK
     Route: 065
  10. CASPOFUNGIN [Suspect]
     Active Substance: CASPOFUNGIN
     Indication: Antibiotic prophylaxis
     Dosage: UNK
     Route: 065
  11. CYCLOSPORINE [Suspect]
     Active Substance: CYCLOSPORINE
     Indication: Acute myeloid leukaemia
     Dosage: UNK
     Route: 065
  12. CYCLOSPORINE [Suspect]
     Active Substance: CYCLOSPORINE
     Indication: Immunosuppressant drug therapy
     Dosage: UNK
     Route: 065
  13. CYCLOSPORINE [Suspect]
     Active Substance: CYCLOSPORINE
     Dosage: UNK
     Route: 065
  14. CYCLOSPORINE [Suspect]
     Active Substance: CYCLOSPORINE
     Dosage: UNK
     Route: 065
  15. CYCLOSPORINE [Suspect]
     Active Substance: CYCLOSPORINE
     Dosage: UNK
     Route: 065
  16. CYCLOSPORINE [Suspect]
     Active Substance: CYCLOSPORINE
     Dosage: UNK
     Route: 065
  17. CYCLOSPORINE [Suspect]
     Active Substance: CYCLOSPORINE
     Dosage: UNK
     Route: 065
  18. CYCLOSPORINE [Suspect]
     Active Substance: CYCLOSPORINE
     Dosage: UNK
     Route: 065
  19. CYCLOSPORINE [Suspect]
     Active Substance: CYCLOSPORINE
     Dosage: UNK
     Route: 065
  20. CYCLOSPORINE [Suspect]
     Active Substance: CYCLOSPORINE
     Dosage: UNK
     Route: 065
  21. CYCLOSPORINE [Suspect]
     Active Substance: CYCLOSPORINE
     Route: 065
  22. CYCLOSPORINE [Suspect]
     Active Substance: CYCLOSPORINE
     Route: 065
  23. CYCLOSPORINE [Suspect]
     Active Substance: CYCLOSPORINE
     Route: 065
  24. CYCLOSPORINE [Suspect]
     Active Substance: CYCLOSPORINE
     Route: 065
  25. CEFTAZIDIME [Suspect]
     Active Substance: CEFTAZIDIME
     Indication: Antibiotic prophylaxis
     Dosage: UNK
     Route: 065
  26. CEFTAZIDIME [Suspect]
     Active Substance: CEFTAZIDIME
     Dosage: UNK
     Route: 065
  27. CEFTAZIDIME [Suspect]
     Active Substance: CEFTAZIDIME
     Dosage: UNK
     Route: 065
  28. CEFTAZIDIME [Suspect]
     Active Substance: CEFTAZIDIME
     Dosage: UNK
     Route: 065
  29. CEFTAZIDIME [Suspect]
     Active Substance: CEFTAZIDIME
     Dosage: UNK
     Route: 065
  30. CEFTAZIDIME [Suspect]
     Active Substance: CEFTAZIDIME
     Dosage: UNK
     Route: 065
  31. CEFTAZIDIME [Suspect]
     Active Substance: CEFTAZIDIME
     Dosage: UNK
     Route: 065
  32. CYTARABINE [Suspect]
     Active Substance: CYTARABINE
     Indication: Acute myeloid leukaemia
     Dosage: 2000 MG/M2, UNK
     Route: 065
  33. CYTARABINE [Suspect]
     Active Substance: CYTARABINE
     Dosage: 2000 MG/M2, UNK
     Route: 065
  34. CYTARABINE [Suspect]
     Active Substance: CYTARABINE
     Dosage: 2000 MG/M2, UNK
     Route: 065
  35. CYTARABINE [Suspect]
     Active Substance: CYTARABINE
     Dosage: 2000 MG/M2, UNK
     Route: 065
  36. CYTARABINE [Suspect]
     Active Substance: CYTARABINE
     Dosage: 2000 MG/M2, UNK
     Route: 065
  37. CYTARABINE [Suspect]
     Active Substance: CYTARABINE
     Dosage: 2000 MG/M2, UNK
     Route: 065
  38. CYTARABINE [Suspect]
     Active Substance: CYTARABINE
     Dosage: 2000 MG/M2, UNK
     Route: 065
  39. FLUCONAZOLE [Suspect]
     Active Substance: FLUCONAZOLE
     Indication: Antifungal prophylaxis
     Dosage: 200.000MG
     Route: 065
  40. FLUCONAZOLE [Suspect]
     Active Substance: FLUCONAZOLE
     Dosage: 200.000MG
     Route: 065
  41. FLUCONAZOLE [Suspect]
     Active Substance: FLUCONAZOLE
     Dosage: 200.000MG
     Route: 065
  42. FLUCONAZOLE [Suspect]
     Active Substance: FLUCONAZOLE
     Dosage: 200.000MG
     Route: 065
  43. FLUCONAZOLE [Suspect]
     Active Substance: FLUCONAZOLE
     Dosage: 200.000MG
     Route: 065
  44. FLUCONAZOLE [Suspect]
     Active Substance: FLUCONAZOLE
     Dosage: 200.000MG
     Route: 065
  45. FLUCONAZOLE [Suspect]
     Active Substance: FLUCONAZOLE
     Dosage: 200.000MG
     Route: 065
  46. FLUDARABINE PHOSPHATE [Suspect]
     Active Substance: FLUDARABINE PHOSPHATE
     Indication: Acute myeloid leukaemia
     Dosage: 30.000MG/M2
     Route: 065
  47. FLUDARABINE PHOSPHATE [Suspect]
     Active Substance: FLUDARABINE PHOSPHATE
     Dosage: 30.000MG/M2
     Route: 065
  48. FLUDARABINE PHOSPHATE [Suspect]
     Active Substance: FLUDARABINE PHOSPHATE
     Dosage: 30.000MG/M2
     Route: 065
  49. FLUDARABINE PHOSPHATE [Suspect]
     Active Substance: FLUDARABINE PHOSPHATE
     Dosage: 30.000MG/M2
     Route: 065
  50. FLUDARABINE PHOSPHATE [Suspect]
     Active Substance: FLUDARABINE PHOSPHATE
     Dosage: 30.000MG/M2
     Route: 065
  51. FLUDARABINE PHOSPHATE [Suspect]
     Active Substance: FLUDARABINE PHOSPHATE
     Dosage: 30.000MG/M2
     Route: 065
  52. FLUDARABINE PHOSPHATE [Suspect]
     Active Substance: FLUDARABINE PHOSPHATE
     Dosage: 30.000MG/M2
     Route: 065
  53. LEVOFLOXACIN [Suspect]
     Active Substance: LEVOFLOXACIN
     Indication: Infection in an immunocompromised host
     Dosage: UNK
     Route: 065
  54. LEVOFLOXACIN [Suspect]
     Active Substance: LEVOFLOXACIN
     Dosage: UNK
     Route: 065
  55. LEVOFLOXACIN [Suspect]
     Active Substance: LEVOFLOXACIN
     Dosage: UNK
     Route: 065
  56. LEVOFLOXACIN [Suspect]
     Active Substance: LEVOFLOXACIN
     Dosage: UNK
     Route: 065
  57. LEVOFLOXACIN [Suspect]
     Active Substance: LEVOFLOXACIN
     Dosage: UNK
     Route: 065
  58. LEVOFLOXACIN [Suspect]
     Active Substance: LEVOFLOXACIN
     Dosage: UNK
     Route: 065
  59. LEVOFLOXACIN [Suspect]
     Active Substance: LEVOFLOXACIN
     Route: 065
  60. MEROPENEM [Suspect]
     Active Substance: MEROPENEM
     Indication: Antibiotic prophylaxis
     Dosage: UNK
     Route: 065
  61. MEROPENEM [Suspect]
     Active Substance: MEROPENEM
     Dosage: UNK
     Route: 065
  62. MEROPENEM [Suspect]
     Active Substance: MEROPENEM
     Dosage: UNK
     Route: 065
  63. MEROPENEM [Suspect]
     Active Substance: MEROPENEM
     Dosage: UNK
     Route: 065
  64. MEROPENEM [Suspect]
     Active Substance: MEROPENEM
     Dosage: UNK
     Route: 065
  65. MEROPENEM [Suspect]
     Active Substance: MEROPENEM
     Dosage: UNK
     Route: 065
  66. MEROPENEM [Suspect]
     Active Substance: MEROPENEM
     Dosage: UNK
     Route: 065
  67. MITOXANTRONE [Suspect]
     Active Substance: MITOXANTRONE HYDROCHLORIDE
     Indication: Antibiotic prophylaxis
     Dosage: UNK
     Route: 065
  68. MITOXANTRONE [Suspect]
     Active Substance: MITOXANTRONE HYDROCHLORIDE
     Dosage: UNK
     Route: 065
  69. MITOXANTRONE [Suspect]
     Active Substance: MITOXANTRONE HYDROCHLORIDE
     Dosage: UNK
     Route: 065
  70. MITOXANTRONE [Suspect]
     Active Substance: MITOXANTRONE HYDROCHLORIDE
     Dosage: UNK
     Route: 065
  71. MITOXANTRONE [Suspect]
     Active Substance: MITOXANTRONE HYDROCHLORIDE
     Dosage: UNK
     Route: 065
  72. MITOXANTRONE [Suspect]
     Active Substance: MITOXANTRONE HYDROCHLORIDE
     Dosage: UNK
     Route: 065
  73. MITOXANTRONE [Suspect]
     Active Substance: MITOXANTRONE HYDROCHLORIDE
     Dosage: UNK
     Route: 065
  74. MYCOPHENOLATE MOFETIL [Suspect]
     Active Substance: MYCOPHENOLATE MOFETIL
     Indication: Immunosuppressant drug therapy
     Dosage: UNK
     Route: 065
  75. MYCOPHENOLATE MOFETIL [Suspect]
     Active Substance: MYCOPHENOLATE MOFETIL
     Dosage: UNK
     Route: 065
  76. MYCOPHENOLATE MOFETIL [Suspect]
     Active Substance: MYCOPHENOLATE MOFETIL
     Dosage: UNK
     Route: 065
  77. MYCOPHENOLATE MOFETIL [Suspect]
     Active Substance: MYCOPHENOLATE MOFETIL
     Dosage: UNK
     Route: 065
  78. MYCOPHENOLATE MOFETIL [Suspect]
     Active Substance: MYCOPHENOLATE MOFETIL
     Dosage: UNK
     Route: 065
  79. MYCOPHENOLATE MOFETIL [Suspect]
     Active Substance: MYCOPHENOLATE MOFETIL
     Dosage: UNK
     Route: 065
  80. MYCOPHENOLATE MOFETIL [Suspect]
     Active Substance: MYCOPHENOLATE MOFETIL
     Dosage: UNK
     Route: 065
  81. MYCOPHENOLATE MOFETIL [Suspect]
     Active Substance: MYCOPHENOLATE MOFETIL
     Indication: Acute myeloid leukaemia
     Dosage: UNK
     Route: 065
  82. MYCOPHENOLATE MOFETIL [Suspect]
     Active Substance: MYCOPHENOLATE MOFETIL
     Dosage: UNK
     Route: 065
  83. MYCOPHENOLATE MOFETIL [Suspect]
     Active Substance: MYCOPHENOLATE MOFETIL
     Dosage: UNK
     Route: 065
  84. MYCOPHENOLATE MOFETIL [Suspect]
     Active Substance: MYCOPHENOLATE MOFETIL
     Dosage: UNK
     Route: 065
  85. MYCOPHENOLATE MOFETIL [Suspect]
     Active Substance: MYCOPHENOLATE MOFETIL
     Dosage: UNK
     Route: 065
  86. MYCOPHENOLATE MOFETIL [Suspect]
     Active Substance: MYCOPHENOLATE MOFETIL
     Dosage: UNK
     Route: 065
  87. MYCOPHENOLATE MOFETIL [Suspect]
     Active Substance: MYCOPHENOLATE MOFETIL
     Dosage: UNK
     Route: 065
  88. PIPERACILLIN AND TAZOBACTAM [Suspect]
     Active Substance: PIPERACILLIN SODIUM\TAZOBACTAM SODIUM
     Indication: Antibiotic prophylaxis
     Dosage: UNK
     Route: 065
  89. PIPERACILLIN AND TAZOBACTAM [Suspect]
     Active Substance: PIPERACILLIN SODIUM\TAZOBACTAM SODIUM
     Dosage: UNK
     Route: 065
  90. PIPERACILLIN AND TAZOBACTAM [Suspect]
     Active Substance: PIPERACILLIN SODIUM\TAZOBACTAM SODIUM
     Dosage: UNK
     Route: 065
  91. PIPERACILLIN AND TAZOBACTAM [Suspect]
     Active Substance: PIPERACILLIN SODIUM\TAZOBACTAM SODIUM
     Dosage: UNK
     Route: 065
  92. PIPERACILLIN AND TAZOBACTAM [Suspect]
     Active Substance: PIPERACILLIN SODIUM\TAZOBACTAM SODIUM
     Dosage: UNK
     Route: 065
  93. PIPERACILLIN AND TAZOBACTAM [Suspect]
     Active Substance: PIPERACILLIN SODIUM\TAZOBACTAM SODIUM
     Dosage: UNK
     Route: 065
  94. PIPERACILLIN AND TAZOBACTAM [Suspect]
     Active Substance: PIPERACILLIN SODIUM\TAZOBACTAM SODIUM
     Dosage: UNK
     Route: 065
  95. PREDNISOLONE [Suspect]
     Active Substance: PREDNISOLONE
     Indication: Graft versus host disease
     Dosage: 2 MG/KG, UNK
     Route: 065
  96. PREDNISOLONE [Suspect]
     Active Substance: PREDNISOLONE
     Dosage: 2 MG/KG, UNK
     Route: 065
  97. PREDNISOLONE [Suspect]
     Active Substance: PREDNISOLONE
     Dosage: 2 MG/KG, UNK
     Route: 065
  98. PREDNISOLONE [Suspect]
     Active Substance: PREDNISOLONE
     Dosage: 2 MG/KG, UNK
     Route: 065
  99. PREDNISOLONE [Suspect]
     Active Substance: PREDNISOLONE
     Dosage: 2 MG/KG, UNK
     Route: 065
  100. PREDNISOLONE [Suspect]
     Active Substance: PREDNISOLONE
     Dosage: 2 MG/KG, UNK
     Route: 065
  101. PREDNISOLONE [Suspect]
     Active Substance: PREDNISOLONE
     Dosage: 2 MG/KG, UNK
     Route: 065
  102. THYMOGLOBULINE [Suspect]
     Active Substance: LAPINE T-LYMPHOCYTE IMMUNE GLOBULIN
     Indication: Acute myeloid leukaemia
     Dosage: UNK
     Route: 065
  103. TIGECYCLINE [Suspect]
     Active Substance: TIGECYCLINE
     Indication: Antibiotic prophylaxis
     Dosage: UNK
     Route: 065
  104. TIGECYCLINE [Suspect]
     Active Substance: TIGECYCLINE
     Dosage: UNK
     Route: 065
  105. TIGECYCLINE [Suspect]
     Active Substance: TIGECYCLINE
     Dosage: UNK
     Route: 065
  106. TIGECYCLINE [Suspect]
     Active Substance: TIGECYCLINE
     Dosage: UNK
     Route: 065
  107. TIGECYCLINE [Suspect]
     Active Substance: TIGECYCLINE
     Dosage: UNK
     Route: 065
  108. TIGECYCLINE [Suspect]
     Active Substance: TIGECYCLINE
     Dosage: UNK
     Route: 065
  109. TIGECYCLINE [Suspect]
     Active Substance: TIGECYCLINE
     Dosage: UNK
     Route: 065
  110. VANCOMYCIN [Suspect]
     Active Substance: VANCOMYCIN
     Indication: Antibiotic prophylaxis
     Dosage: UNK
     Route: 065
  111. VANCOMYCIN [Suspect]
     Active Substance: VANCOMYCIN
     Dosage: UNK
     Route: 065
  112. VANCOMYCIN [Suspect]
     Active Substance: VANCOMYCIN
     Dosage: UNK
     Route: 065
  113. VANCOMYCIN [Suspect]
     Active Substance: VANCOMYCIN
     Dosage: UNK
     Route: 065
  114. VANCOMYCIN [Suspect]
     Active Substance: VANCOMYCIN
     Dosage: UNK
     Route: 065
  115. VANCOMYCIN [Suspect]
     Active Substance: VANCOMYCIN
     Dosage: UNK
     Route: 065
  116. VANCOMYCIN [Suspect]
     Active Substance: VANCOMYCIN
     Route: 065

REACTIONS (14)
  - Graft versus host disease in gastrointestinal tract [Fatal]
  - Bacterial sepsis [Fatal]
  - Graft versus host disease in skin [Fatal]
  - Systemic inflammatory response syndrome [Fatal]
  - Malaise [Fatal]
  - Fatigue [Fatal]
  - Abscess [Fatal]
  - C-reactive protein increased [Fatal]
  - White blood cell count decreased [Unknown]
  - Dysbiosis [Unknown]
  - Multiple-drug resistance [Unknown]
  - Escherichia infection [Unknown]
  - Paraspinal abscess [Recovered/Resolved]
  - Neutropenia [Unknown]
